FAERS Safety Report 4468330-5 (Version None)
Quarter: 2004Q4

REPORT INFORMATION
  Report Type: 
  Country: None (occurrence: None)
  Receive Date: 20041007
  Receipt Date: 20040928
  Transmission Date: 20050328
  Serious: Yes (Hospitalization)
  Sender: FDA-Public Use
  Company Number: NL-ROCHE-381471

PATIENT
  Age: 27 Year
  Sex: Male

DRUGS (1)
  1. RIVOTRIL [Suspect]
     Indication: INSOMNIA
     Route: 048
     Dates: start: 20020415, end: 20030801

REACTIONS (12)
  - AGITATION [None]
  - ANXIETY [None]
  - CONFUSIONAL STATE [None]
  - DELIRIUM [None]
  - DIARRHOEA [None]
  - DISORIENTATION [None]
  - DYSKINESIA [None]
  - HALLUCINATION [None]
  - MEMORY IMPAIRMENT [None]
  - MUSCULOSKELETAL STIFFNESS [None]
  - RESTLESSNESS [None]
  - VOMITING [None]
